FAERS Safety Report 16362937 (Version 1)
Quarter: 2019Q2

REPORT INFORMATION
  Report Type: Spontaneous
  Country: CA (occurrence: CA)
  Receive Date: 20190528
  Receipt Date: 20190528
  Transmission Date: 20190711
  Serious: Yes (Death)
  Sender: FDA-Public Use
  Company Number: CA-TEVA-2019-CA-1055850

PATIENT
  Age: 36 Year
  Sex: Female

DRUGS (5)
  1. IBRANCE [Suspect]
     Active Substance: PALBOCICLIB
     Indication: PRODUCT USED FOR UNKNOWN INDICATION
     Dosage: 125 MILLIGRAM
     Route: 048
  2. CLARITIN /00984601/ [Concomitant]
  3. LETROZOLE. [Suspect]
     Active Substance: LETROZOLE
     Indication: PRODUCT USED FOR UNKNOWN INDICATION
     Route: 065
  4. IBRANCE [Suspect]
     Active Substance: PALBOCICLIB
     Dosage: 1 DF
     Route: 048
  5. HYDROMORPHONE [Concomitant]
     Active Substance: HYDROMORPHONE
     Dosage: 1MILLIGRAM

REACTIONS (10)
  - Heart rate increased [Fatal]
  - Aphasia [Fatal]
  - Limb discomfort [Fatal]
  - Ear discomfort [Fatal]
  - Death [Fatal]
  - Balance disorder [Fatal]
  - Visual impairment [Fatal]
  - Blood pressure increased [Fatal]
  - Headache [Fatal]
  - Tremor [Fatal]
